FAERS Safety Report 8581627-2 (Version None)
Quarter: 2012Q3

REPORT INFORMATION
  Report Type: 
  Country: None (occurrence: None)
  Receive Date: 20120809
  Receipt Date: 20120806
  Transmission Date: 20120928
  Serious: Yes (Death)
  Sender: FDA-Public Use
  Company Number: BR-PFIZER INC-2012190590

PATIENT
  Age: 4 Year
  Sex: Male

DRUGS (2)
  1. VORICONAZOLE [Suspect]
     Indication: FUSARIUM INFECTION
     Route: 042
  2. AMPHOTERICIN B [Suspect]
     Indication: FUSARIUM INFECTION
     Route: 042

REACTIONS (1)
  - NO THERAPEUTIC RESPONSE [None]
